FAERS Safety Report 11081227 (Version 1)
Quarter: 2015Q2

REPORT INFORMATION
  Report Type: Spontaneous
  Country: US (occurrence: US)
  Receive Date: 20150501
  Receipt Date: 20150501
  Transmission Date: 20150821
  Serious: No
  Sender: FDA-Public Use
  Company Number: US-ABBVIE-14P-163-1236269-00

PATIENT
  Sex: Male
  Weight: 74.91 kg

DRUGS (6)
  1. CREON [Suspect]
     Active Substance: PANCRELIPASE AMYLASE\PANCRELIPASE LIPASE\PANCRELIPASE PROTEASE
     Indication: CYSTIC FIBROSIS
     Dosage: 5 CAPSULES WITH MEALS, UP TO 6 TIMES PER DAY
     Dates: start: 2013
  2. ROPINIROLE. [Concomitant]
     Active Substance: ROPINIROLE
     Indication: RESTLESS LEGS SYNDROME
  3. PULMOZYME [Concomitant]
     Active Substance: DORNASE ALFA
     Indication: LUNG DISORDER
  4. VITAMIN B12 (CYANOCOBALAMIN AND ANALOGUES) [Concomitant]
     Indication: VITAMIN SUPPLEMENTATION
  5. TESTOSTERONE. [Concomitant]
     Active Substance: TESTOSTERONE
     Indication: ANDROGEN REPLACEMENT THERAPY
  6. MILK THISTLE [Concomitant]
     Active Substance: MILK THISTLE
     Indication: SUPPLEMENTATION THERAPY

REACTIONS (7)
  - Fatigue [Not Recovered/Not Resolved]
  - Weight decreased [Not Recovered/Not Resolved]
  - Dyspepsia [Not Recovered/Not Resolved]
  - Inappropriate schedule of drug administration [Unknown]
  - Abdominal pain upper [Not Recovered/Not Resolved]
  - Hypermetabolism [Unknown]
  - Decreased appetite [Not Recovered/Not Resolved]
